FAERS Safety Report 9739390 (Version 2)
Quarter: 2013Q4

REPORT INFORMATION
  Report Type: Spontaneous
  Country: US (occurrence: US)
  Receive Date: 20131209
  Receipt Date: 20131209
  Transmission Date: 20140711
  Serious: No
  Sender: FDA-Public Use
  Company Number: US-BRISTOL-MYERS SQUIBB COMPANY-17088386

PATIENT
  Age: 57 Year
  Sex: Female
  Weight: 72.56 kg

DRUGS (5)
  1. IXEMPRA [Suspect]
     Indication: BREAST CANCER
     Dates: start: 201208
  2. NEULASTA [Suspect]
  3. ZYPREXA [Suspect]
  4. TAMOXIFEN [Concomitant]
  5. IRON [Concomitant]

REACTIONS (13)
  - Wound [Unknown]
  - Constipation [Unknown]
  - Nausea [Unknown]
  - Decreased appetite [Unknown]
  - Dysgeusia [Unknown]
  - Breast atrophy [Unknown]
  - Dry mouth [Unknown]
  - Weight increased [Unknown]
  - Breast hyperplasia [Unknown]
  - Abdominal distension [Unknown]
  - Anaemia [Unknown]
  - Lymphoedema [Unknown]
  - Weight decreased [Unknown]
